FAERS Safety Report 18835425 (Version 1)
Quarter: 2021Q1

REPORT INFORMATION
  Report Type: Spontaneous
  Country: US (occurrence: US)
  Receive Date: 20210203
  Receipt Date: 20210203
  Transmission Date: 20210419
  Serious: No
  Sender: FDA-Public Use
  Company Number: None

PATIENT
  Age: 58 Year
  Sex: Female
  Weight: 64.35 kg

DRUGS (3)
  1. LEVOTHYROXINE. [Concomitant]
     Active Substance: LEVOTHYROXINE
  2. PANTOPRAZOLE SOD DR [Suspect]
     Active Substance: PANTOPRAZOLE SODIUM
     Indication: GASTROOESOPHAGEAL REFLUX DISEASE
     Dosage: ?          QUANTITY:1 TABLET(S);?
     Route: 048
     Dates: start: 20210113, end: 20210129
  3. ONE A DAY WOMEN^S 50 PLUS [Concomitant]
     Active Substance: MINERALS\VITAMINS

REACTIONS (5)
  - Speech disorder [None]
  - Lip swelling [None]
  - Dizziness [None]
  - Hypoaesthesia [None]
  - Swollen tongue [None]

NARRATIVE: CASE EVENT DATE: 20210129
